FAERS Safety Report 5365167-X (Version None)
Quarter: 2007Q2

REPORT INFORMATION
  Report Type: 
  Country: None (occurrence: None)
  Receive Date: 20070530
  Receipt Date: 20070329
  Transmission Date: 20071010
  Serious: No
  Sender: FDA-Public Use
  Company Number: 2006PV018470

PATIENT
  Age: 53 Year
  Sex: Female
  Weight: 89.3586 kg

DRUGS (9)
  1. BYETTA [Suspect]
     Indication: DIABETES MELLITUS NON-INSULIN-DEPENDENT
     Dosage: 10 MCG; BID; SC; 5 MCG;BID; SC; 10MCG; BID; SC; 5 MCG;BID; SC
     Route: 058
     Dates: start: 20060101, end: 20060101
  2. BYETTA [Suspect]
     Indication: DIABETES MELLITUS NON-INSULIN-DEPENDENT
     Dosage: 10 MCG; BID; SC; 5 MCG;BID; SC; 10MCG; BID; SC; 5 MCG;BID; SC
     Route: 058
     Dates: start: 20060329, end: 20060601
  3. BYETTA [Suspect]
     Indication: DIABETES MELLITUS NON-INSULIN-DEPENDENT
     Dosage: 10 MCG; BID; SC; 5 MCG;BID; SC; 10MCG; BID; SC; 5 MCG;BID; SC
     Route: 058
     Dates: start: 20060101
  4. BYETTA [Suspect]
     Indication: DIABETES MELLITUS NON-INSULIN-DEPENDENT
     Dosage: 10 MCG; BID; SC; 5 MCG;BID; SC; 10MCG; BID; SC; 5 MCG;BID; SC
     Route: 058
     Dates: start: 20060601
  5. BYETTA [Suspect]
  6. MULTIVITAMIN [Concomitant]
  7. METFORMIN HCL [Concomitant]
  8. GLUCOTROL [Concomitant]
  9. ............................. [Concomitant]

REACTIONS (7)
  - BLOOD GLUCOSE INCREASED [None]
  - DEPRESSION [None]
  - DRUG EFFECT DECREASED [None]
  - INJECTION SITE PAIN [None]
  - NAUSEA [None]
  - VOMITING [None]
  - WEIGHT DECREASED [None]
